FAERS Safety Report 7503559-0 (Version None)
Quarter: 2011Q2

REPORT INFORMATION
  Report Type: 
  Country: None (occurrence: None)
  Receive Date: 20110525
  Receipt Date: 20110513
  Transmission Date: 20111010
  Serious: Yes (Hospitalization)
  Sender: FDA-Public Use
  Company Number: US-BAYER-2011-033758

PATIENT
  Age: 54 Year
  Sex: Male

DRUGS (2)
  1. SORAFENIB (RAF KINASE INHIBITOR) [Suspect]
     Indication: THYROID CANCER
     Dosage: 400MG AM, 200MG PM
     Route: 048
     Dates: start: 20110312, end: 20110502
  2. EVEROLIMUS [Concomitant]
     Dosage: UNK

REACTIONS (11)
  - LIMB DISCOMFORT [None]
  - VOMITING [None]
  - HYPERHIDROSIS [None]
  - OEDEMA PERIPHERAL [None]
  - ERYTHEMA [None]
  - PYREXIA [None]
  - BACK PAIN [None]
  - PAIN IN EXTREMITY [None]
  - FATIGUE [None]
  - VIRAL INFECTION [None]
  - TREMOR [None]
